FAERS Safety Report 5563235-0 (Version None)
Quarter: 2007Q4

REPORT INFORMATION
  Report Type: 
  Country: None (occurrence: None)
  Receive Date: 20071217
  Receipt Date: 20071207
  Transmission Date: 20080405
  Serious: Yes (Other)
  Sender: FDA-Public Use
  Company Number: US-WYE-H01621507

PATIENT
  Sex: Female

DRUGS (4)
  1. EFFEXOR XR [Suspect]
     Indication: DEPRESSION
     Dosage: TITRATED UP
     Route: 048
     Dates: start: 20020101
  2. EFFEXOR XR [Suspect]
     Route: 048
     Dates: end: 20070101
  3. EFFEXOR XR [Suspect]
     Dosage: TAPERED TO 75 MG
     Route: 048
     Dates: start: 20070101
  4. WELLBUTRIN [Suspect]
     Indication: DEPRESSION
     Dosage: 150 MG (FREQUENCY UNSPECIFIED)
     Dates: start: 20070101

REACTIONS (5)
  - ABNORMAL BEHAVIOUR [None]
  - CONDITION AGGRAVATED [None]
  - DEPRESSION [None]
  - DRUG WITHDRAWAL SYNDROME [None]
  - SUICIDAL IDEATION [None]
